FAERS Safety Report 8069867-2 (Version None)
Quarter: 2012Q1

REPORT INFORMATION
  Report Type: 
  Country: None (occurrence: None)
  Receive Date: 20120125
  Receipt Date: 20120119
  Transmission Date: 20120608
  Serious: No
  Sender: FDA-Public Use
  Company Number: US-PFIZER INC-2012016005

PATIENT
  Sex: Female
  Weight: 54.4 kg

DRUGS (3)
  1. DEPO-SUBQ PROVERA 104 [Suspect]
     Indication: MENORRHAGIA
  2. DEPO-SUBQ PROVERA 104 [Suspect]
     Indication: BLOOD IRON DECREASED
  3. DEPO-SUBQ PROVERA 104 [Suspect]
     Indication: OFF LABEL USE
     Dosage: UNK, ONCE IN 3 MONTHS
     Route: 058
     Dates: start: 20111101

REACTIONS (2)
  - DRUG INEFFECTIVE FOR UNAPPROVED INDICATION [None]
  - DRUG ADMINISTERED AT INAPPROPRIATE SITE [None]
